FAERS Safety Report 10382545 (Version 1)
Quarter: 2014Q3

REPORT INFORMATION
  Report Type: Spontaneous
  Country: DK (occurrence: DK)
  Receive Date: 20140813
  Receipt Date: 20140813
  Transmission Date: 20150326
  Serious: Yes (Hospitalization)
  Sender: FDA-Public Use
  Company Number: PHHY2014DK096023

PATIENT
  Age: 38 Year
  Sex: Female

DRUGS (3)
  1. METADON DAK [Concomitant]
     Active Substance: METHADONE HYDROCHLORIDE
     Indication: DRUG WITHDRAWAL SYNDROME
  2. VEPICOMBIN NOVUM [Suspect]
     Active Substance: PENICILLIN V POTASSIUM
     Indication: BREAST ABSCESS
     Route: 048
     Dates: start: 20140317, end: 20140321
  3. DICILLIN [Suspect]
     Active Substance: DICLOXACILLIN SODIUM
     Indication: BREAST ABSCESS
     Route: 048
     Dates: start: 20140317, end: 20140321

REACTIONS (3)
  - Erythema [Recovered/Resolved]
  - Rash generalised [Recovered/Resolved]
  - Oedema mouth [Recovered/Resolved]

NARRATIVE: CASE EVENT DATE: 20140320
